FAERS Safety Report 7494066-2 (Version None)
Quarter: 2011Q2

REPORT INFORMATION
  Report Type: 
  Country: None (occurrence: None)
  Receive Date: 20110520
  Receipt Date: 20110517
  Transmission Date: 20111010
  Serious: Yes (Death, Hospitalization)
  Sender: FDA-Public Use
  Company Number: BR-ABBOTT-11P-020-0726685-00

PATIENT
  Sex: Female

DRUGS (3)
  1. METOPROLOL SUCCINATE [Concomitant]
     Indication: BLOOD PRESSURE
     Dosage: 50 MG DAILY
     Route: 048
     Dates: start: 20110201
  2. HUMIRA [Suspect]
     Indication: RHEUMATOID ARTHRITIS
     Route: 058
     Dates: start: 20110201
  3. APRESOLINA [Concomitant]
     Indication: BLOOD PRESSURE
     Dates: start: 20110201

REACTIONS (5)
  - SHOCK [None]
  - RENAL FAILURE CHRONIC [None]
  - OSTEOARTHRITIS [None]
  - DIARRHOEA [None]
  - GASTROINTESTINAL INFECTION [None]
